FAERS Safety Report 4314051-9 (Version None)
Quarter: 2004Q1

REPORT INFORMATION
  Report Type: 
  Country: None (occurrence: None)
  Receive Date: 20040305
  Receipt Date: 20031028
  Transmission Date: 20041129
  Serious: Yes (Hospitalization)
  Sender: FDA-Public Use
  Company Number: 2003UW14004

PATIENT
  Age: 63 Year
  Sex: Female

DRUGS (7)
  1. CRESTOR [Suspect]
     Dosage: 10 MG PO
     Route: 048
     Dates: start: 20030911
  2. PREVACID [Concomitant]
  3. BECLOFEN [Concomitant]
  4. SYNTHROID [Concomitant]
  5. ECOTRIN [Concomitant]
  6. NITROSTAT [Concomitant]
  7. ATENOLOL [Concomitant]

REACTIONS (2)
  - ABDOMINAL PAIN [None]
  - PANCREATITIS [None]
